FAERS Safety Report 6251252-7 (Version None)
Quarter: 2009Q2

REPORT INFORMATION
  Report Type: 
  Country: None (occurrence: None)
  Receive Date: 20090626
  Receipt Date: 20090617
  Transmission Date: 20091009
  Serious: Yes (Hospitalization)
  Sender: FDA-Public Use
  Company Number: GXKR2009CH07055

PATIENT
  Age: 67 Year
  Sex: Female

DRUGS (6)
  1. RIFAMPICIN [Suspect]
     Indication: BONE TUBERCULOSIS
     Dosage: 600 MG QW3 ORAL
     Route: 048
     Dates: start: 20090401
  2. RIMIFON [Suspect]
     Indication: BONE TUBERCULOSIS
     Dosage: 900 MG QW3 ORAL
     Route: 048
     Dates: start: 20090401, end: 20090416
  3. REMERON [Suspect]
     Indication: DEPRESSION
     Dosage: 30 MG QD ORAL
     Route: 048
     Dates: start: 20090108, end: 20090407
  4. ETHAMBUTOL (ETHAMBUTOL) TABLET, 400 MG [Suspect]
     Indication: BONE TUBERCULOSIS
     Dosage: 1200MG, QW3, ORAL
     Route: 048
     Dates: start: 20090401
  5. NEURONTIN [Suspect]
     Indication: BACK PAIN
     Dosage: 300 PER E WEEKS ORAL
     Route: 048
  6. PYRAZINAMIDE [Suspect]
     Indication: BONE TUBERCULOSIS
     Dosage: 1200 MG QW3 ORAL
     Route: 048
     Dates: start: 20090401

REACTIONS (4)
  - CONFUSIONAL STATE [None]
  - DELIRIUM [None]
  - DRUG INTERACTION [None]
  - PSYCHOMOTOR HYPERACTIVITY [None]
